FAERS Safety Report 8920024 (Version 1)
Quarter: 2012Q4

REPORT INFORMATION
  Report Type: 
  Country: US (occurrence: US)
  Receive Date: 20121121
  Receipt Date: 20121121
  Transmission Date: 20130627
  Serious: No
  Sender: FDA-Public Use
  Company Number: US-BRISTOL-MYERS SQUIBB COMPANY-16260705

PATIENT

DRUGS (1)
  1. AVALIDE TABS 150MG/12.5MG [Suspect]
     Dosage: 1Df=150/12.5mg

REACTIONS (1)
  - Circumstance or information capable of leading to medication error [Unknown]
